FAERS Safety Report 6617877-1 (Version None)
Quarter: 2010Q1

REPORT INFORMATION
  Report Type: 
  Country: None (occurrence: None)
  Receive Date: 20100308
  Receipt Date: 20100224
  Transmission Date: 20100710
  Serious: Yes (Hospitalization)
  Sender: FDA-Public Use
  Company Number: GB-ELI_LILLY_AND_COMPANY-GB201002006559

PATIENT
  Age: 44 Year
  Sex: Female

DRUGS (3)
  1. OLANZAPINE [Suspect]
     Indication: BRIEF PSYCHOTIC DISORDER, WITH POSTPARTUM ONSET
     Dosage: 10 MG, UNK
     Route: 048
     Dates: start: 20100109, end: 20100115
  2. HALOPERIDOL [Concomitant]
     Indication: AGITATION
     Dosage: 5 MG, UNK
     Route: 048
     Dates: start: 20100109, end: 20100115
  3. PARACETAMOL [Concomitant]
     Indication: PAIN
     Dosage: 1 G, UNK
     Route: 048
     Dates: start: 20100109, end: 20100111

REACTIONS (1)
  - WHITE BLOOD CELL COUNT DECREASED [None]
